FAERS Safety Report 23554398 (Version 2)
Quarter: 2024Q1

REPORT INFORMATION
  Report Type: Spontaneous
  Country: CN (occurrence: CN)
  Receive Date: 20240222
  Receipt Date: 20240301
  Transmission Date: 20240409
  Serious: Yes (Hospitalization, Other)
  Sender: FDA-Public Use
  Company Number: CN-PFIZER INC-PV202400023796

PATIENT
  Age: 6 Year
  Sex: Female
  Weight: 18.5 kg

DRUGS (1)
  1. METHOTREXATE SODIUM [Suspect]
     Active Substance: METHOTREXATE SODIUM
     Indication: Acute lymphocytic leukaemia
     Dosage: 3.9G (CONTINUOUS 24 HOURS, 10% OF TOTAL FOR FIRST 0.5 HOURS, 90% OF TOTAL FOR NEXT 23.5 HOURS)
     Route: 041
     Dates: start: 20240206, end: 20240207

REACTIONS (11)
  - Myelosuppression [Unknown]
  - Sepsis [Unknown]
  - Vomiting [Recovered/Resolved]
  - Oral mucosa erosion [Recovered/Resolved]
  - Scab [Recovered/Resolved]
  - Stomatitis [Recovering/Resolving]
  - Lip haemorrhage [Unknown]
  - Pyrexia [Unknown]
  - Rhinorrhoea [Unknown]
  - Inflammation [Unknown]
  - Mucosal disorder [Unknown]

NARRATIVE: CASE EVENT DATE: 20240201
